FAERS Safety Report 12911476 (Version 1)
Quarter: 2016Q4

REPORT INFORMATION
  Report Type: Spontaneous
  Country: US (occurrence: US)
  Receive Date: 20161102
  Receipt Date: 20161102
  Transmission Date: 20170207
  Serious: No
  Sender: FDA-Public Use
  Company Number: None

PATIENT
  Age: 37 Year
  Sex: Male
  Weight: 65.25 kg

DRUGS (1)
  1. ILOTYCIN [Suspect]
     Active Substance: ERYTHROMYCIN
     Indication: BLEPHARITIS
     Dosage: 1 DROP, AT BEDTIME
     Route: 047
     Dates: start: 20161006, end: 20161023

REACTIONS (1)
  - Stomatitis [None]

NARRATIVE: CASE EVENT DATE: 20161010
